FAERS Safety Report 17865531 (Version 1)
Quarter: 2020Q2

REPORT INFORMATION
  Report Type: Spontaneous
  Country: US (occurrence: US)
  Receive Date: 20200605
  Receipt Date: 20200605
  Transmission Date: 20200714
  Serious: No
  Sender: FDA-Public Use
  Company Number: None

PATIENT
  Age: 47 Year
  Sex: Female
  Weight: 177 kg

DRUGS (7)
  1. OMALIZUMAB 300 MG SC MONTHLY [Concomitant]
     Dates: start: 20191220
  2. EMGALITY [Suspect]
     Active Substance: GALCANEZUMAB-GNLM
     Indication: MIGRAINE
     Route: 058
  3. EMGALITY [Suspect]
     Active Substance: GALCANEZUMAB-GNLM
     Indication: CLUSTER HEADACHE
     Route: 058
  4. LINACLOTIDE 145 MCG DAILY CHRONIC CONSTIPATION [Concomitant]
     Dates: start: 20200121, end: 20200601
  5. MIRABEGRON 25 MG PO DAILY BLADDER [Concomitant]
     Dates: start: 20171117, end: 20200417
  6. HYDROXYZINE 25 MG TID PRN ITCHING [Concomitant]
     Dates: start: 20190422, end: 20200528
  7. LORATADINE 10 MG DAILY ALLERGY SYMPTOMS [Concomitant]
     Dates: start: 20191104

REACTIONS (3)
  - Injection site mass [None]
  - Impaired healing [None]
  - Pruritus [None]

NARRATIVE: CASE EVENT DATE: 20200222
